FAERS Safety Report 7308997-7 (Version None)
Quarter: 2011Q1

REPORT INFORMATION
  Report Type: 
  Country: None (occurrence: None)
  Receive Date: 20110223
  Receipt Date: 20110207
  Transmission Date: 20110831
  Serious: Yes (Other)
  Sender: FDA-Public Use
  Company Number: US-BAYER-201037232NA

PATIENT
  Sex: Female

DRUGS (4)
  1. YAZ [Suspect]
     Indication: PRODUCT USED FOR UNKNOWN INDICATION
     Dates: start: 20020227, end: 20020101
  2. YASMIN [Suspect]
     Indication: PRODUCT USED FOR UNKNOWN INDICATION
     Dates: start: 20020227, end: 20020101
  3. OCELLA [Suspect]
     Indication: PRODUCT USED FOR UNKNOWN INDICATION
     Dates: start: 20020227, end: 20020101
  4. YASMIN [Suspect]
     Dosage: UNK
     Dates: start: 20050101

REACTIONS (4)
  - HEADACHE [None]
  - DIZZINESS POSTURAL [None]
  - GALLBLADDER INJURY [None]
  - PANIC REACTION [None]
